FAERS Safety Report 10129765 (Version 2)
Quarter: 2014Q2

REPORT INFORMATION
  Report Type: Spontaneous
  Country: CN (occurrence: CN)
  Receive Date: 20140428
  Receipt Date: 20140516
  Transmission Date: 20141212
  Serious: Yes (Hospitalization)
  Sender: FDA-Public Use
  Company Number: CN-JNJFOC-20140410248

PATIENT
  Age: 10 Year
  Sex: Male
  Weight: 28 kg

DRUGS (5)
  1. TYLENOL [Suspect]
     Indication: PYREXIA
     Route: 048
     Dates: start: 20130912, end: 20130914
  2. CEFUROXIME SODIUM [Suspect]
     Indication: PRODUCT USED FOR UNKNOWN INDICATION
     Route: 065
     Dates: start: 20130912, end: 20130914
  3. XIYANPING ZHUSHEYE [Suspect]
     Indication: PRODUCT USED FOR UNKNOWN INDICATION
     Route: 065
     Dates: start: 20130913, end: 20130914
  4. GENTAMICIN SULFATE [Concomitant]
     Indication: PRODUCT USED FOR UNKNOWN INDICATION
     Route: 065
     Dates: start: 20130912, end: 20130914
  5. MONTMORILLONITE [Concomitant]
     Indication: PRODUCT USED FOR UNKNOWN INDICATION
     Route: 065
     Dates: start: 20130913, end: 20130919

REACTIONS (1)
  - Hepatic function abnormal [Recovering/Resolving]
